FAERS Safety Report 4951082-X (Version None)
Quarter: 2006Q1

REPORT INFORMATION
  Report Type: 
  Country: None (occurrence: None)
  Receive Date: 20060322
  Receipt Date: 20060210
  Transmission Date: 20060701
  Serious: Yes (Death, Hospitalization)
  Sender: FDA-Public Use
  Company Number: US-MERCK-0602USA03403

PATIENT
  Age: 55 Year
  Sex: Female
  Weight: 57 kg

DRUGS (14)
  1. VIOXX [Suspect]
     Indication: RHEUMATOID ARTHRITIS
     Route: 048
  2. VIOXX [Suspect]
     Indication: FIBROMYALGIA
     Route: 048
  3. PREMPRO [Concomitant]
     Indication: HORMONE REPLACEMENT THERAPY
     Route: 048
     Dates: end: 20020819
  4. DURAGESIC-100 [Concomitant]
     Indication: PAIN
     Route: 061
  5. ZYPREXA [Concomitant]
     Route: 048
  6. MEPHYTON [Concomitant]
     Route: 065
  7. COUMADIN [Concomitant]
     Indication: ANTICOAGULANT THERAPY
     Route: 048
  8. SYNTHROID [Concomitant]
     Route: 048
  9. LIPITOR [Concomitant]
     Route: 065
  10. CATAPRES [Concomitant]
     Route: 065
  11. FOLIC ACID [Concomitant]
     Route: 065
  12. NORVASC [Concomitant]
     Route: 065
  13. EFFEXOR [Concomitant]
     Route: 048
  14. TRAZODONE HYDROCHLORIDE [Concomitant]
     Route: 048

REACTIONS (14)
  - ARTHRITIS [None]
  - BACK PAIN [None]
  - BRONCHITIS [None]
  - CARDIAC DISORDER [None]
  - CHRONIC OBSTRUCTIVE PULMONARY DISEASE [None]
  - DEATH [None]
  - INSOMNIA [None]
  - METRORRHAGIA [None]
  - NERVOUSNESS [None]
  - OEDEMA PERIPHERAL [None]
  - PAIN IN EXTREMITY [None]
  - SHOULDER PAIN [None]
  - STRESS [None]
  - UPPER RESPIRATORY TRACT INFECTION [None]
